FAERS Safety Report 10098718 (Version 1)
Quarter: 2014Q2

REPORT INFORMATION
  Report Type: Spontaneous
  Country: US (occurrence: None)
  Receive Date: 20140417
  Receipt Date: 20140417
  Transmission Date: 20141212
  Serious: Yes (Other)
  Sender: FDA-Public Use
  Company Number: US-145492

PATIENT
  Age: 23 Year
  Sex: Female
  Weight: 77.57 kg

DRUGS (1)
  1. VARIZIG [Suspect]
     Dates: start: 20130909, end: 20130909

REACTIONS (3)
  - Exposure during pregnancy [None]
  - No adverse event [None]
  - Normal newborn [None]
